FAERS Safety Report 17546923 (Version 1)
Quarter: 2020Q1

REPORT INFORMATION
  Report Type: Report from Study
  Country: US (occurrence: US)
  Receive Date: 20200316
  Receipt Date: 20200316
  Transmission Date: 20200409
  Serious: Yes (Other)
  Sender: FDA-Public Use
  Company Number: US-INCYTE CORPORATION-2020IN001925

PATIENT

DRUGS (1)
  1. JAKAFI [Suspect]
     Active Substance: RUXOLITINIB
     Indication: MYELOFIBROSIS
     Dosage: 5 MILLIGRAM, BID
     Route: 048

REACTIONS (7)
  - Dry mouth [Unknown]
  - Nutritional condition abnormal [Unknown]
  - Haemorrhage [Unknown]
  - Tooth disorder [Unknown]
  - Gingival recession [Unknown]
  - Eating disorder [Unknown]
  - Mastication disorder [Unknown]
